FAERS Safety Report 6494588-7 (Version None)
Quarter: 2009Q4

REPORT INFORMATION
  Report Type: 
  Country: None (occurrence: None)
  Receive Date: 20091214
  Receipt Date: 20090305
  Transmission Date: 20100525
  Serious: Yes (Hospitalization, Other)
  Sender: FDA-Public Use
  Company Number: US-BRISTOL-MYERS SQUIBB COMPANY-14532741

PATIENT
  Sex: Female

DRUGS (3)
  1. ABILIFY [Suspect]
     Dosage: STOPPED AND RESTARTED AT 2MG AND AGAIN STOPPED.
     Dates: start: 20090101
  2. TYLENOL (CAPLET) [Suspect]
  3. LAMICTAL [Concomitant]

REACTIONS (2)
  - LIVER INJURY [None]
  - OVERDOSE [None]
